FAERS Safety Report 4479607-1 (Version None)
Quarter: 2004Q4

REPORT INFORMATION
  Report Type: 
  Country: None (occurrence: None)
  Receive Date: 20041015
  Receipt Date: 20041008
  Transmission Date: 20050328
  Serious: Yes (Hospitalization)
  Sender: FDA-Public Use
  Company Number: 200418678BWH

PATIENT
  Age: 62 Year
  Sex: Female
  Weight: 48.9885 kg

DRUGS (5)
  1. CIPRO XR [Suspect]
     Indication: URINARY TRACT INFECTION
     Dosage: 100 MG, QD, ORAL
     Route: 048
     Dates: start: 20040605, end: 20040611
  2. MULTI-VITAMIN [Concomitant]
  3. VITAMIN E [Concomitant]
  4. VITAMIN C [Concomitant]
  5. FOSAMAX [Concomitant]

REACTIONS (3)
  - BENIGN RENAL NEOPLASM [None]
  - BLOOD TEST ABNORMAL [None]
  - RENAL HAEMATOMA [None]
